FAERS Safety Report 11325892 (Version 1)
Quarter: 2015Q3

REPORT INFORMATION
  Report Type: Spontaneous
  Country: US (occurrence: US)
  Receive Date: 20150731
  Receipt Date: 20150731
  Transmission Date: 20151125
  Serious: No
  Sender: FDA-Public Use
  Company Number: US-ROCHE-1408855

PATIENT
  Age: 59 Year
  Sex: Female

DRUGS (9)
  1. RIBASPHERE RIBAPAK [Suspect]
     Active Substance: RIBAVIRIN
     Indication: CHRONIC HEPATITIS C
     Dosage: DIVIDED DOSES, KADMON PHARMACEUTICALS BRAND
     Route: 048
     Dates: start: 20140405
  2. SOVALDI [Suspect]
     Active Substance: SOFOSBUVIR
     Indication: CHRONIC HEPATITIS C
     Dosage: (MFG-GILEAD)
     Route: 065
     Dates: start: 20140405
  3. NAPROXEN. [Concomitant]
     Active Substance: NAPROXEN
     Indication: SCIATICA
     Dosage: 2 TABLETS EVERY MORNING
     Route: 065
  4. FLEXERIL [Concomitant]
     Active Substance: CYCLOBENZAPRINE HYDROCHLORIDE
     Indication: SCIATICA
     Route: 065
  5. ELAVIL [Concomitant]
     Active Substance: AMITRIPTYLINE HYDROCHLORIDE
     Indication: SCIATICA
     Route: 065
  6. EPSOM SALT BATH SOLUTION [Concomitant]
  7. PEGASYS [Suspect]
     Active Substance: PEGINTERFERON ALFA-2A
     Indication: CHRONIC HEPATITIS C
     Dosage: 180 MCG/1 ML
     Route: 058
     Dates: start: 20140405, end: 20140425
  8. PEGASYS [Suspect]
     Active Substance: PEGINTERFERON ALFA-2A
     Route: 058
     Dates: start: 20140425
  9. RIBASPHERE RIBAPAK [Suspect]
     Active Substance: RIBAVIRIN
     Route: 048
     Dates: start: 20140510

REACTIONS (16)
  - Anaemia [Unknown]
  - White blood cell count decreased [Unknown]
  - Red blood cell count decreased [Unknown]
  - Hyperhidrosis [Unknown]
  - Hyperhidrosis [Unknown]
  - Decreased appetite [Unknown]
  - Nausea [Unknown]
  - Gait disturbance [Unknown]
  - Pain in extremity [Unknown]
  - Product quality issue [Unknown]
  - Dyspepsia [Unknown]
  - Productive cough [Unknown]
  - Product contamination [Unknown]
  - Diarrhoea [Unknown]
  - Dry mouth [Unknown]
  - Vomiting [Unknown]

NARRATIVE: CASE EVENT DATE: 20140524
